FAERS Safety Report 21760288 (Version 1)
Quarter: 2022Q4

REPORT INFORMATION
  Report Type: Report from Study
  Country: GB (occurrence: GB)
  Receive Date: 20221221
  Receipt Date: 20221221
  Transmission Date: 20230112
  Serious: Yes (Other)
  Sender: FDA-Public Use
  Company Number: GB-002147023-NVSC2021GB111818

PATIENT
  Age: 47 Year
  Sex: Female

DRUGS (2)
  1. KISQALI [Suspect]
     Active Substance: RIBOCICLIB
     Indication: Breast cancer metastatic
     Dosage: 600 MG, QD (21 DAYS OF EACH MONTH)
     Route: 048
     Dates: start: 20210507
  2. KISQALI [Suspect]
     Active Substance: RIBOCICLIB
     Dosage: UNK (1 ST LINE)
     Route: 065
     Dates: start: 202207

REACTIONS (18)
  - Electrocardiogram QT prolonged [Not Recovered/Not Resolved]
  - COVID-19 [Unknown]
  - Electrocardiogram T wave abnormal [Not Recovered/Not Resolved]
  - Arthralgia [Recovered/Resolved]
  - Pain in extremity [Recovered/Resolved]
  - Diarrhoea [Recovered/Resolved]
  - Arthralgia [Not Recovered/Not Resolved]
  - Ear infection [Unknown]
  - Swelling face [Unknown]
  - Blood urine present [Not Recovered/Not Resolved]
  - Skin infection [Recovered/Resolved]
  - Urinary tract infection [Recovered/Resolved]
  - Back pain [Unknown]
  - Headache [Unknown]
  - Pollakiuria [Not Recovered/Not Resolved]
  - Dysuria [Not Recovered/Not Resolved]
  - Urinary tract infection [Not Recovered/Not Resolved]
  - Pain in extremity [Not Recovered/Not Resolved]

NARRATIVE: CASE EVENT DATE: 20210515
